FAERS Safety Report 22264856 (Version 2)
Quarter: 2023Q2

REPORT INFORMATION
  Report Type: Spontaneous
  Country: US (occurrence: None)
  Receive Date: 20230428
  Receipt Date: 20230510
  Transmission Date: 20230721
  Serious: Yes (Hospitalization)
  Sender: FDA-Public Use
  Company Number: US-FARMAPROD-202211-2360

PATIENT
  Sex: Male

DRUGS (5)
  1. OXERVATE [Suspect]
     Active Substance: CENEGERMIN-BKBJ
     Indication: Neurotrophic keratopathy
     Route: 047
     Dates: start: 20221118, end: 20230105
  2. OXERVATE [Suspect]
     Active Substance: CENEGERMIN-BKBJ
     Route: 047
     Dates: start: 20230301
  3. DUTASTERIDE [Concomitant]
     Active Substance: DUTASTERIDE
  4. LEVOTHYROXINE SODIUM [Concomitant]
     Active Substance: LEVOTHYROXINE SODIUM
  5. ARTIFICIAL TEARS [Concomitant]

REACTIONS (8)
  - Hospitalisation [Unknown]
  - Eye pain [Not Recovered/Not Resolved]
  - Device use issue [Unknown]
  - Eye irritation [Unknown]
  - Vision blurred [Not Recovered/Not Resolved]
  - Diplopia [Unknown]
  - Eyelid pain [Unknown]
  - Dyspnoea [Unknown]
